FAERS Safety Report 7148436-2 (Version None)
Quarter: 2010Q4

REPORT INFORMATION
  Report Type: 
  Country: None (occurrence: None)
  Receive Date: 20101124
  Receipt Date: 20101110
  Transmission Date: 20110411
  Serious: Yes (Death, Other)
  Sender: FDA-Public Use
  Company Number: 000904

PATIENT
  Sex: Male
  Weight: 120 kg

DRUGS (11)
  1. NEUPRO [Suspect]
     Indication: PARKINSON'S DISEASE
     Dosage: (6 MG 1/2 TRANSDERMAL) ; (6 MG QD TRANSDERMAL) ; (8 MG QD)
     Route: 062
     Dates: start: 20061127, end: 20061210
  2. NEUPRO [Suspect]
     Indication: PARKINSON'S DISEASE
     Dosage: (6 MG 1/2 TRANSDERMAL) ; (6 MG QD TRANSDERMAL) ; (8 MG QD)
     Route: 062
     Dates: start: 20061211, end: 20081111
  3. NEUPRO [Suspect]
     Indication: PARKINSON'S DISEASE
     Dosage: (6 MG 1/2 TRANSDERMAL) ; (6 MG QD TRANSDERMAL) ; (8 MG QD)
     Route: 062
     Dates: start: 20081112, end: 20081126
  4. PK-LEVO [Concomitant]
  5. AMLODIPINE [Concomitant]
  6. RAMIPRIL [Concomitant]
  7. TORASEMID [Concomitant]
  8. HCT [Concomitant]
  9. MARCUMAR [Concomitant]
  10. AZILECT [Concomitant]
  11. STALEVO 100 [Concomitant]

REACTIONS (3)
  - CARDIAC FAILURE [None]
  - HYPERTHYROIDISM [None]
  - MULTI-ORGAN FAILURE [None]
